FAERS Safety Report 24662133 (Version 1)
Quarter: 2024Q4

REPORT INFORMATION
  Report Type: Spontaneous
  Country: US (occurrence: US)
  Receive Date: 20241125
  Receipt Date: 20241125
  Transmission Date: 20250115
  Serious: Yes (Hospitalization, Other)
  Sender: NOVITIUM PHARMA
  Company Number: US-NOVITIUMPHARMA-2024USNVP02630

PATIENT
  Sex: Male

DRUGS (9)
  1. SULFAMETHOXAZOLE\TRIMETHOPRIM [Suspect]
     Active Substance: SULFAMETHOXAZOLE\TRIMETHOPRIM
     Indication: Urinary tract infection
     Dosage: 800MG/160MG
  2. METFORMIN [Concomitant]
     Active Substance: METFORMIN HYDROCHLORIDE
     Indication: Type 2 diabetes mellitus
  3. APIXABAN [Concomitant]
     Active Substance: APIXABAN
     Indication: Product used for unknown indication
  4. CEFTRIAXONE [Concomitant]
     Active Substance: CEFTRIAXONE
     Indication: Urinary tract infection
  5. Insulin-suspension-isophane [Concomitant]
     Indication: Product used for unknown indication
  6. BISACODYL [Concomitant]
     Active Substance: BISACODYL
     Indication: Constipation
  7. DEXTROSE [Concomitant]
     Active Substance: DEXTROSE MONOHYDRATE
     Indication: Hypoglycaemia
  8. Senna-alexandrina [Concomitant]
     Indication: Constipation
  9. Plantago-ovata [Concomitant]
     Indication: Constipation

REACTIONS (3)
  - Intentional product misuse [Unknown]
  - Acute kidney injury [Recovering/Resolving]
  - Drug ineffective [Unknown]
